FAERS Safety Report 20101159 (Version 1)
Quarter: 2021Q4

REPORT INFORMATION
  Report Type: Spontaneous
  Country: US (occurrence: US)
  Receive Date: 20211123
  Receipt Date: 20211123
  Transmission Date: 20220303
  Serious: Yes (Hospitalization)
  Sender: FDA-Public Use
  Company Number: US-JNJFOC-20211131273

PATIENT
  Age: 29 Year
  Sex: Female
  Weight: 74.6 kg

DRUGS (5)
  1. TYLENOL PM [Suspect]
     Active Substance: ACETAMINOPHEN\DIPHENHYDRAMINE
     Indication: Suicide attempt
     Dosage: TOOK SINGLE DOSE SINGLE DOSE OF TYLENOL PM (ACETAMINOPHEN 500 MG/DIPHENHYDRAMINE HYDROCHLORIDE 25 MG
     Route: 048
     Dates: start: 20030719, end: 20030719
  2. ZYPREXA [Suspect]
     Active Substance: OLANZAPINE
     Indication: Suicide attempt
     Dosage: 5 MG/DAY
     Route: 065
     Dates: end: 20030719
  3. TRILEPTAL [Suspect]
     Active Substance: OXCARBAZEPINE
     Indication: Suicide attempt
     Dosage: UNKNOWN DOSE
     Route: 065
  4. KLONOPIN [Suspect]
     Active Substance: CLONAZEPAM
     Indication: Suicide attempt
     Dosage: UNKNOWN DOSE
     Route: 065
  5. PROZAC [Concomitant]
     Active Substance: FLUOXETINE HYDROCHLORIDE
     Indication: Product used for unknown indication
     Route: 065
     Dates: end: 20030719

REACTIONS (6)
  - Suicide attempt [Recovered/Resolved]
  - Escherichia urinary tract infection [Recovered/Resolved]
  - Fungal infection [Recovered/Resolved]
  - Acute hepatic failure [Recovered/Resolved]
  - Acute kidney injury [Recovered/Resolved]
  - Intentional overdose [Recovered/Resolved]
